FAERS Safety Report 10989396 (Version 3)
Quarter: 2015Q2

REPORT INFORMATION
  Report Type: Spontaneous
  Country: US (occurrence: US)
  Receive Date: 20150406
  Receipt Date: 20150520
  Transmission Date: 20150821
  Serious: No
  Sender: FDA-Public Use
  Company Number: US-PFIZER INC-2015113687

PATIENT
  Age: 77 Year
  Sex: Male

DRUGS (2)
  1. TESTOSTERONE CIPIONATE [Suspect]
     Active Substance: TESTOSTERONE
     Indication: PROSTATIC DISORDER
     Dosage: 0.7 ML, WEEKLY
     Dates: start: 199901
  2. TESTOSTERONE CIPIONATE [Suspect]
     Active Substance: TESTOSTERONE
     Indication: GENITAL DISORDER MALE

REACTIONS (7)
  - Injection site erythema [Unknown]
  - Poor quality drug administered [Recovered/Resolved]
  - Injection site swelling [Unknown]
  - Product deposit [Not Recovered/Not Resolved]
  - Drug ineffective [Recovered/Resolved]
  - Malaise [Recovered/Resolved]
  - Injection site pruritus [Unknown]

NARRATIVE: CASE EVENT DATE: 201501
